FAERS Safety Report 4477121-0 (Version None)
Quarter: 2004Q4

REPORT INFORMATION
  Report Type: 
  Country: None (occurrence: None)
  Receive Date: 20041018
  Receipt Date: 20041006
  Transmission Date: 20050328
  Serious: Yes (Other)
  Sender: FDA-Public Use
  Company Number: PHEH2004US10797

PATIENT
  Sex: Male

DRUGS (1)
  1. MIACALCIN [Suspect]

REACTIONS (4)
  - CALCIUM METABOLISM DISORDER [None]
  - DRUG INEFFECTIVE [None]
  - INTESTINAL RESECTION [None]
  - SPINAL FRACTURE [None]
